FAERS Safety Report 6966179-2 (Version None)
Quarter: 2010Q3

REPORT INFORMATION
  Report Type: 
  Country: None (occurrence: None)
  Receive Date: 20100903
  Receipt Date: 20100823
  Transmission Date: 20110219
  Serious: Yes (Other)
  Sender: FDA-Public Use
  Company Number: FR-ELI_LILLY_AND_COMPANY-FR201008007143

PATIENT
  Sex: Female

DRUGS (1)
  1. GEMCITABINE HCL [Suspect]
     Indication: LEIOMYOSARCOMA
     Dosage: 1000 MG/M2, UNKNOWN
     Route: 065

REACTIONS (1)
  - PULMONARY TOXICITY [None]
